FAERS Safety Report 20921259 (Version 1)
Quarter: 2022Q2

REPORT INFORMATION
  Report Type: Spontaneous
  Country: US (occurrence: None)
  Receive Date: 20220606
  Receipt Date: 20220606
  Transmission Date: 20220721
  Serious: Yes (Other)
  Sender: FDA-Public Use
  Company Number: None

PATIENT
  Age: 80 Year
  Sex: Female
  Weight: 68.04 kg

DRUGS (2)
  1. PRAVASTATIN [Suspect]
     Active Substance: PRAVASTATIN
     Indication: Hyperlipidaemia
     Dosage: OTHER QUANTITY : 1 PILL;?FREQUENCY : DAILY;?
     Route: 048
     Dates: start: 20210319, end: 20211221
  2. VITAMIN D3 [Concomitant]
     Active Substance: CHOLECALCIFEROL

REACTIONS (8)
  - Dysphonia [None]
  - Asthenia [None]
  - Cough [None]
  - Fatigue [None]
  - Asthenia [None]
  - Amnesia [None]
  - Visual impairment [None]
  - Muscular weakness [None]

NARRATIVE: CASE EVENT DATE: 20211221
